FAERS Safety Report 10057338 (Version 5)
Quarter: 2016Q2

REPORT INFORMATION
  Report Type: Report from Study
  Country: PR (occurrence: PR)
  Receive Date: 20140403
  Receipt Date: 20160524
  Transmission Date: 20160815
  Serious: Yes (Hospitalization, Other)
  Sender: FDA-Public Use
  Company Number: PR-ABBVIE-14P-131-1187017-00

PATIENT
  Sex: Female
  Weight: 169.8 kg

DRUGS (23)
  1. HUMIRA [Suspect]
     Active Substance: ADALIMUMAB
     Indication: PSORIATIC ARTHROPATHY
     Route: 058
     Dates: start: 201105, end: 201602
  2. HUMALOG [Concomitant]
     Active Substance: INSULIN LISPRO
     Indication: DIABETES MELLITUS
     Route: 058
  3. NEURONTIN [Concomitant]
     Active Substance: GABAPENTIN
     Route: 048
  4. FLEXERIL [Concomitant]
     Active Substance: CYCLOBENZAPRINE HYDROCHLORIDE
     Indication: PRODUCT USED FOR UNKNOWN INDICATION
  5. HUMIRA [Suspect]
     Active Substance: ADALIMUMAB
     Indication: PSORIASIS
     Route: 058
  6. GLUCOFAST [Concomitant]
     Indication: DIABETES MELLITUS
     Route: 048
  7. VASOTEC [Concomitant]
     Active Substance: ENALAPRIL MALEATE
     Indication: PROPHYLAXIS
     Route: 048
  8. LASIX [Concomitant]
     Active Substance: FUROSEMIDE
     Indication: DIURETIC THERAPY
     Route: 048
     Dates: start: 201401, end: 201601
  9. GLUCOFAST [Concomitant]
     Route: 048
  10. HUMALOG [Concomitant]
     Active Substance: INSULIN LISPRO
  11. VASOFLEX [Concomitant]
     Indication: CARDIOVASCULAR DISORDER
     Route: 048
  12. RELAFEN [Concomitant]
     Active Substance: NABUMETONE
     Indication: PRODUCT USED FOR UNKNOWN INDICATION
     Route: 048
  13. PARAFON FORTE [Concomitant]
     Active Substance: CHLORZOXAZONE
     Indication: PRODUCT USED FOR UNKNOWN INDICATION
  14. LANTUS [Concomitant]
     Active Substance: INSULIN GLARGINE
     Indication: DIABETES MELLITUS
     Dosage: AT BEDTIME
     Route: 058
  15. TRAMADOL. [Concomitant]
     Active Substance: TRAMADOL
     Indication: PRODUCT USED FOR UNKNOWN INDICATION
  16. LANTUS [Concomitant]
     Active Substance: INSULIN GLARGINE
     Dosage: AT BEDTIME
     Route: 058
  17. VASOTEC [Concomitant]
     Active Substance: ENALAPRIL MALEATE
     Indication: HYPERTENSION
  18. NEURONTIN [Concomitant]
     Active Substance: GABAPENTIN
     Indication: DIABETIC NEUROPATHY
     Route: 048
  19. HUMIRA [Suspect]
     Active Substance: ADALIMUMAB
     Route: 058
     Dates: start: 201603
  20. ENALAPRIL [Concomitant]
     Active Substance: ENALAPRIL
     Indication: PRODUCT USED FOR UNKNOWN INDICATION
  21. LASIX [Concomitant]
     Active Substance: FUROSEMIDE
     Route: 048
     Dates: start: 201601
  22. METFORMIN [Concomitant]
     Active Substance: METFORMIN HYDROCHLORIDE
     Indication: PRODUCT USED FOR UNKNOWN INDICATION
  23. OXYGEN. [Concomitant]
     Active Substance: OXYGEN
     Indication: PULMONARY OEDEMA
     Dosage: TO SLEEP
     Route: 055
     Dates: start: 2014

REACTIONS (28)
  - Drug prescribing error [Not Recovered/Not Resolved]
  - Blood glucose abnormal [Recovered/Resolved]
  - Hypothyroidism [Recovering/Resolving]
  - Pain in extremity [Recovered/Resolved]
  - Pain [Not Recovered/Not Resolved]
  - Insomnia [Recovering/Resolving]
  - Pain in extremity [Not Recovered/Not Resolved]
  - Pulmonary oedema [Recovered/Resolved]
  - Oedema peripheral [Recovering/Resolving]
  - Dizziness [Recovered/Resolved]
  - Gait disturbance [Recovering/Resolving]
  - Blood glucose decreased [Recovered/Resolved]
  - Psoriasis [Recovering/Resolving]
  - Cardiac arrest [Recovered/Resolved]
  - Fluid retention [Recovering/Resolving]
  - Blood glucose increased [Recovered/Resolved]
  - Malaise [Recovered/Resolved]
  - Dyspnoea [Unknown]
  - Arthralgia [Recovered/Resolved]
  - Mobility decreased [Recovering/Resolving]
  - Hyperhidrosis [Recovered/Resolved]
  - Muscular weakness [Unknown]
  - Fall [Recovered/Resolved]
  - Respiratory depression [Recovered/Resolved]
  - Cardiac failure [Unknown]
  - Vascular insufficiency [Recovered/Resolved]
  - Psoriasis [Not Recovered/Not Resolved]
  - Fall [Recovered/Resolved]

NARRATIVE: CASE EVENT DATE: 2013
